FAERS Safety Report 7109878-4 (Version None)
Quarter: 2010Q4

REPORT INFORMATION
  Report Type: 
  Country: None (occurrence: None)
  Receive Date: 20101118
  Receipt Date: 20101108
  Transmission Date: 20110411
  Serious: Yes (Hospitalization)
  Sender: FDA-Public Use
  Company Number: FR-JNJFOC-20101102801

PATIENT
  Age: 44 Year
  Sex: Male

DRUGS (6)
  1. REMICADE [Suspect]
     Indication: ERYTHRODERMIC PSORIASIS
     Route: 042
  2. HUMIRA [Suspect]
     Indication: ERYTHRODERMIC PSORIASIS
     Route: 065
  3. SORIATANE [Concomitant]
     Indication: ERYTHRODERMIC PSORIASIS
  4. OLMETEC [Concomitant]
  5. TAHOR [Concomitant]
  6. ZYPREXA [Concomitant]

REACTIONS (1)
  - SQUAMOUS CELL CARCINOMA [None]
